FAERS Safety Report 4486491-9 (Version None)
Quarter: 2004Q4

REPORT INFORMATION
  Report Type: 
  Country: None (occurrence: None)
  Receive Date: 20041021
  Receipt Date: 20041005
  Transmission Date: 20050328
  Serious: Yes (Hospitalization)
  Sender: FDA-Public Use
  Company Number: 203045

PATIENT
  Age: 51 Year
  Sex: Female

DRUGS (2)
  1. AVONEX [Suspect]
     Indication: MULTIPLE SCLEROSIS
     Dosage: 30 MCG QW IM
     Route: 030
     Dates: start: 20020701, end: 20040301
  2. AVONEX [Suspect]
     Indication: MULTIPLE SCLEROSIS
     Dosage: 30 MCG QW IM
     Route: 030
     Dates: start: 20040802

REACTIONS (12)
  - AUTOIMMUNE HEPATITIS [None]
  - CHOLESTASIS [None]
  - FEMUR FRACTURE [None]
  - HEPATIC CIRRHOSIS [None]
  - HEPATIC FIBROSIS [None]
  - HEPATITIS [None]
  - HEPATOCELLULAR DAMAGE [None]
  - LYMPHADENOPATHY [None]
  - MULTIPLE SCLEROSIS RELAPSE [None]
  - OSTEOPOROSIS [None]
  - PORTAL HYPERTENSION [None]
  - SPLENOMEGALY [None]
